FAERS Safety Report 5219700-9 (Version None)
Quarter: 2007Q1

REPORT INFORMATION
  Report Type: 
  Country: None (occurrence: None)
  Receive Date: 20061201
  Receipt Date: 20060703
  Transmission Date: 20070707
  Serious: No
  Sender: FDA-Public Use
  Company Number: 2006PV016900

PATIENT
  Age: 41 Year
  Sex: Male

DRUGS (3)
  1. BYETTA [Suspect]
     Indication: DIABETES MELLITUS NON-INSULIN-DEPENDENT
     Dosage: 50 MCG;BID;SC
     Route: 058
     Dates: start: 20060401, end: 20060501
  2. BYETTA [Suspect]
     Indication: DIABETES MELLITUS NON-INSULIN-DEPENDENT
     Dosage: 50 MCG;BID;SC
     Route: 058
     Dates: start: 20060501, end: 20060703
  3. AMOXICILLIN [Suspect]
     Indication: TOOTH DISORDER
     Dosage: Q6H; PO
     Route: 048
     Dates: start: 20060629, end: 20060703

REACTIONS (3)
  - FATIGUE [None]
  - HEADACHE [None]
  - PYREXIA [None]
